FAERS Safety Report 8267316-2 (Version None)
Quarter: 2012Q2

REPORT INFORMATION
  Report Type: 
  Country: None (occurrence: None)
  Receive Date: 20120409
  Receipt Date: 20120404
  Transmission Date: 20120825
  Serious: Yes (Death, Other)
  Sender: FDA-Public Use
  Company Number: US-ASTELLAS-2012US002855

PATIENT
  Sex: Male

DRUGS (1)
  1. PROGRAF [Suspect]
     Indication: RENAL TRANSPLANT
     Dosage: 5 MG, BID
     Route: 048
     Dates: start: 20110823, end: 20120312

REACTIONS (7)
  - HYPERGLYCAEMIA [None]
  - MENTAL STATUS CHANGES [None]
  - CARDIAC ARREST [None]
  - DRUG INEFFECTIVE [None]
  - POLYOMAVIRUS-ASSOCIATED NEPHROPATHY [None]
  - KIDNEY TRANSPLANT REJECTION [None]
  - CHOLELITHIASIS [None]
